FAERS Safety Report 8388215-1 (Version None)
Quarter: 2012Q2

REPORT INFORMATION
  Report Type: 
  Country: None (occurrence: None)
  Receive Date: 20120525
  Receipt Date: 20120516
  Transmission Date: 20120825
  Serious: Yes (Disabling)
  Sender: FDA-Public Use
  Company Number: US-ELI_LILLY_AND_COMPANY-US201205007217

PATIENT
  Sex: Male

DRUGS (2)
  1. HUMATROPE [Suspect]
     Dosage: UNK
     Dates: start: 20080821, end: 20081001
  2. GENOTROPIN [Concomitant]
     Dosage: UNK
     Dates: start: 20081001

REACTIONS (5)
  - JOINT CONTRACTURE [None]
  - SCIATIC NERVE INJURY [None]
  - SENSORY LOSS [None]
  - GAIT DISTURBANCE [None]
  - MOTOR DYSFUNCTION [None]
